FAERS Safety Report 5928579-9 (Version None)
Quarter: 2008Q3

REPORT INFORMATION
  Report Type: 
  Country: None (occurrence: None)
  Receive Date: 20080923
  Receipt Date: 20080501
  Transmission Date: 20090109
  Serious: Yes (Other)
  Sender: FDA-Public Use
  Company Number: WAES 0805USA00475

PATIENT
  Age: 68 Year
  Sex: Male

DRUGS (5)
  1. VYTORIN [Suspect]
     Dosage: 10-80 MG DAILY PO
     Route: 048
  2. PLAVIX [Concomitant]
  3. PRINIVIL [Concomitant]
  4. THERAPY UNSPECIFIED [Concomitant]
  5. ASPIRIN [Concomitant]

REACTIONS (1)
  - HEPATIC ENZYME INCREASED [None]
